FAERS Safety Report 9476211 (Version 1)
Quarter: 2013Q3

REPORT INFORMATION
  Report Type: Spontaneous
  Country: BR (occurrence: BR)
  Receive Date: 20130826
  Receipt Date: 20130826
  Transmission Date: 20140515
  Serious: Yes (Other)
  Sender: FDA-Public Use
  Company Number: BR-ASTRAZENECA-2013SE63978

PATIENT
  Age: 52 Year
  Sex: Female

DRUGS (3)
  1. XYLOCAINE [Suspect]
     Indication: TOOTHACHE
     Route: 065
     Dates: start: 20130812
  2. CAPTOPRIL [Concomitant]
     Indication: HYPERTENSION
  3. AMLODIPINE [Concomitant]
     Indication: HYPERTENSION

REACTIONS (2)
  - Hypertension [Recovered/Resolved]
  - Off label use [Unknown]
